FAERS Safety Report 4526598-0 (Version None)
Quarter: 2004Q4

REPORT INFORMATION
  Report Type: 
  Country: None (occurrence: None)
  Receive Date: 20041214
  Receipt Date: 20030423
  Transmission Date: 20050328
  Serious: Yes (Hospitalization)
  Sender: FDA-Public Use
  Company Number: CA-BRISTOL-MYERS SQUIBB COMPANY-12252367

PATIENT
  Age: 77 Year
  Sex: Female
  Weight: 60 kg

DRUGS (9)
  1. GATIFLOXACIN [Suspect]
     Indication: PNEUMONIA
     Route: 048
     Dates: start: 20030320, end: 20030327
  2. CENTRUM FORTE [Interacting]
  3. ATENOLOL [Concomitant]
  4. CALCIUM CARBONATE [Concomitant]
  5. COUMADIN [Concomitant]
  6. DIGOXIN [Concomitant]
  7. LOSEC [Concomitant]
  8. PRAVASTATIN SODIUM [Concomitant]
     Dosage: AT BEDTIME
  9. VITAMIN D [Concomitant]

REACTIONS (2)
  - DRUG INEFFECTIVE [None]
  - DRUG INTERACTION [None]
